FAERS Safety Report 9881107 (Version 1)
Quarter: 2014Q1

REPORT INFORMATION
  Report Type: Spontaneous
  Country: US (occurrence: US)
  Receive Date: 20140207
  Receipt Date: 20140207
  Transmission Date: 20141002
  Serious: No
  Sender: FDA-Public Use
  Company Number: US-PFIZER INC-2014016016

PATIENT
  Sex: Female

DRUGS (8)
  1. PROTONIX [Suspect]
     Indication: GASTROOESOPHAGEAL REFLUX DISEASE
     Dosage: 40 MG, 1X/DAY
  2. PROTONIX [Suspect]
     Indication: IMPAIRED GASTRIC EMPTYING
  3. CITALOPRAM [Suspect]
     Dosage: 10 MG, 1X/DAY
  4. CITALOPRAM [Suspect]
     Dosage: 2.5 MG, 1X/DAY
  5. ZANTAC [Concomitant]
     Indication: GASTROOESOPHAGEAL REFLUX DISEASE
     Dosage: 300 MG, 2X/DAY
  6. ZANTAC [Concomitant]
     Indication: IMPAIRED GASTRIC EMPTYING
  7. DEXLANSOPRAZOLE [Concomitant]
     Indication: GASTROOESOPHAGEAL REFLUX DISEASE
     Dosage: 60 MG, 1X/DAY
  8. DEXLANSOPRAZOLE [Concomitant]
     Indication: IMPAIRED GASTRIC EMPTYING

REACTIONS (1)
  - Lactation disorder [Not Recovered/Not Resolved]
